FAERS Safety Report 10979170 (Version 1)
Quarter: 2015Q2

REPORT INFORMATION
  Report Type: Spontaneous
  Country: US (occurrence: US)
  Receive Date: 20150402
  Receipt Date: 20150402
  Transmission Date: 20150821
  Serious: Yes (Other)
  Sender: FDA-Public Use
  Company Number: US-TEVA-550946USA

PATIENT
  Age: 39 Year
  Sex: Female

DRUGS (1)
  1. DIAMOX SEQUELS [Suspect]
     Active Substance: ACETAZOLAMIDE
     Indication: NEOPLASM
     Route: 065
     Dates: start: 201411

REACTIONS (1)
  - Blindness [Unknown]

NARRATIVE: CASE EVENT DATE: 201412
